FAERS Safety Report 20085342 (Version 1)
Quarter: 2021Q4

REPORT INFORMATION
  Report Type: Spontaneous
  Country: GB (occurrence: GB)
  Receive Date: 20211118
  Receipt Date: 20211118
  Transmission Date: 20220303
  Serious: Yes (Other)
  Sender: FDA-Public Use
  Company Number: None

PATIENT
  Age: 47 Year
  Sex: Female

DRUGS (1)
  1. FENTANYL [Suspect]
     Active Substance: FENTANYL
     Indication: Ill-defined disorder
     Dosage: UNK (USE ONE PATCH EVERY 3 DAYS)
     Route: 062
     Dates: start: 20211107, end: 20211107

REACTIONS (1)
  - Application site bruise [Not Recovered/Not Resolved]

NARRATIVE: CASE EVENT DATE: 20211107
